FAERS Safety Report 7152552-9 (Version None)
Quarter: 2010Q4

REPORT INFORMATION
  Report Type: 
  Country: None (occurrence: None)
  Receive Date: 20101213
  Receipt Date: 20101201
  Transmission Date: 20110411
  Serious: Yes (Hospitalization, Other)
  Sender: FDA-Public Use
  Company Number: IT-CELGENEUS-083-C5013-10112317

PATIENT
  Sex: Male
  Weight: 90 kg

DRUGS (5)
  1. CC-5013\PLACEBO [Suspect]
     Indication: PROSTATE CANCER
     Route: 048
     Dates: start: 20101028, end: 20101118
  2. DOCETAXEL [Suspect]
     Indication: PROSTATE CANCER
     Route: 065
     Dates: start: 20101028, end: 20101118
  3. PREDNISONE [Suspect]
     Indication: PROSTATE CANCER
     Route: 065
     Dates: start: 20101028, end: 20101118
  4. COUMADIN [Concomitant]
     Indication: PROPHYLAXIS
     Route: 048
     Dates: end: 20101119
  5. FRAXIPARINE [Concomitant]
     Dosage: 0.6U
     Route: 058
     Dates: start: 20101120

REACTIONS (3)
  - ANAL HAEMORRHAGE [None]
  - ANAL ULCER [None]
  - PROCTALGIA [None]
